FAERS Safety Report 16260479 (Version 1)
Quarter: 2019Q2

REPORT INFORMATION
  Report Type: Spontaneous
  Country: US (occurrence: US)
  Receive Date: 20190430
  Receipt Date: 20190430
  Transmission Date: 20190711
  Serious: Yes (Hospitalization)
  Sender: FDA-Public Use
  Company Number: None

PATIENT
  Age: 64 Year
  Sex: Female

DRUGS (8)
  1. TALTZ [Suspect]
     Active Substance: IXEKIZUMAB
     Indication: PSORIASIS
     Dosage: ?          OTHER FREQUENCY:Q 2 WKS FOR WK4-12;?
     Route: 058
     Dates: start: 20190321
  2. PREDNISONE 10MG [Concomitant]
     Active Substance: PREDNISONE
  3. OMEPRAZOLE 40MG [Concomitant]
     Active Substance: OMEPRAZOLE
  4. CALCIUM 500MG [Concomitant]
  5. ALDACTONE 50MG [Concomitant]
  6. PAXIL 10MG [Concomitant]
  7. FERROUS SULF 325 MG [Concomitant]
  8. CYCLOSPORINE 100MG [Concomitant]
     Active Substance: CYCLOSPORINE

REACTIONS (3)
  - Injection site reaction [None]
  - Product dose omission [None]
  - Abdominal pain [None]

NARRATIVE: CASE EVENT DATE: 20190426
